FAERS Safety Report 7868208-0 (Version None)
Quarter: 2011Q4

REPORT INFORMATION
  Report Type: 
  Country: None (occurrence: None)
  Receive Date: 20111028
  Receipt Date: 20111026
  Transmission Date: 20120403
  Serious: Yes (Hospitalization)
  Sender: FDA-Public Use
  Company Number: JP-MERCK-1110USA01000

PATIENT
  Age: 78 Year
  Sex: Female
  Weight: 55 kg

DRUGS (7)
  1. JANUVIA [Suspect]
     Indication: DIABETES MELLITUS
     Dosage: DOSAGE IS UNCERTAIN DURING A DAY
     Route: 048
     Dates: start: 20110809, end: 20111005
  2. ASPIRIN [Concomitant]
     Route: 048
     Dates: start: 20100518, end: 20111005
  3. LIPITOR [Concomitant]
     Route: 048
     Dates: start: 20110518, end: 20111005
  4. LANSOPRAZOLE [Concomitant]
     Route: 048
  5. EURODIN [Concomitant]
     Route: 048
     Dates: start: 20100518, end: 20111005
  6. LASIX [Concomitant]
     Route: 048
     Dates: start: 20100518, end: 20111005
  7. JANUVIA [Suspect]
     Dosage: DOSAGE IS UNCERTAIN DURING A DAY
     Route: 048
     Dates: start: 20111019

REACTIONS (2)
  - DIABETIC KETOACIDOSIS [None]
  - HYPERGLYCAEMIA [None]
